FAERS Safety Report 11381670 (Version 1)
Quarter: 2015Q3

REPORT INFORMATION
  Report Type: Spontaneous
  Country: US (occurrence: US)
  Receive Date: 20150814
  Receipt Date: 20150814
  Transmission Date: 20151125
  Serious: No
  Sender: FDA-Public Use
  Company Number: US-GALDERMA-US14003296

PATIENT
  Age: 19 Year

DRUGS (6)
  1. VITAMINS [Concomitant]
     Active Substance: VITAMINS
     Dates: start: 1996
  2. ZINC OXIDE SUNSCREEN [Concomitant]
     Route: 061
     Dates: start: 2013
  3. CLINDAMYCIN [Concomitant]
     Active Substance: CLINDAMYCIN\CLINDAMYCIN PHOSPHATE
     Route: 061
  4. DIFFERIN [Suspect]
     Active Substance: ADAPALENE
     Indication: ACNE
     Dosage: 0.3%
     Route: 061
     Dates: start: 201310, end: 2014
  5. JOJOBA OIL [Concomitant]
     Dates: start: 2013
  6. NEUTROGENA FACE WASH [Concomitant]
     Dates: start: 2013, end: 2014

REACTIONS (9)
  - Skin discomfort [Recovered/Resolved]
  - Skin fissures [Recovered/Resolved]
  - Erythema [Not Recovered/Not Resolved]
  - Dry skin [Not Recovered/Not Resolved]
  - Skin exfoliation [Not Recovered/Not Resolved]
  - Skin irritation [Not Recovered/Not Resolved]
  - Pruritus [Not Recovered/Not Resolved]
  - Skin exfoliation [Recovered/Resolved]
  - Drug ineffective [Recovered/Resolved]

NARRATIVE: CASE EVENT DATE: 201311
